FAERS Safety Report 9232388 (Version 1)
Quarter: 2013Q2

REPORT INFORMATION
  Report Type: Spontaneous
  Country: FR (occurrence: FR)
  Receive Date: 20130416
  Receipt Date: 20130416
  Transmission Date: 20140414
  Serious: Yes (Other)
  Sender: FDA-Public Use
  Company Number: FR-ABBOTT-13X-056-1076457-00

PATIENT
  Age: 62 Year
  Sex: Male

DRUGS (1)
  1. DEPAKOTE [Suspect]
     Indication: BIPOLAR DISORDER
     Route: 048
     Dates: start: 201206, end: 201212

REACTIONS (2)
  - Muscle rupture [Recovered/Resolved]
  - Myalgia [Recovered/Resolved]
